FAERS Safety Report 5899233-7 (Version None)
Quarter: 2008Q3

REPORT INFORMATION
  Report Type: 
  Country: None (occurrence: None)
  Receive Date: 20080925
  Receipt Date: 20080918
  Transmission Date: 20090109
  Serious: Yes (Hospitalization)
  Sender: FDA-Public Use
  Company Number: US-ABBOTT-08P-163-0477159-00

PATIENT
  Sex: Female
  Weight: 148 kg

DRUGS (25)
  1. HUMIRA [Suspect]
     Indication: RHEUMATOID ARTHRITIS
     Dates: start: 20080331, end: 20080710
  2. PIOGLITAZONE [Concomitant]
     Indication: DIABETES MELLITUS
     Route: 048
  3. ALLEGRA-D [Concomitant]
     Indication: HYPERSENSITIVITY
     Route: 048
  4. ZOLPIDEM TARTRATE [Concomitant]
     Indication: INSOMNIA
     Route: 048
  5. IRBESARTAN [Concomitant]
     Indication: DRUG USE FOR UNKNOWN INDICATION
     Route: 048
  6. COLCHICINE [Concomitant]
     Indication: GOUT
     Route: 048
  7. ROSUVASTATIN [Concomitant]
     Indication: BLOOD CHOLESTEROL
     Route: 048
  8. ACETYLSALICYLIC ACID SRT [Concomitant]
     Indication: ANTICOAGULANT THERAPY
     Route: 048
  9. FOLIC ACID [Concomitant]
     Indication: VITAMIN SUPPLEMENTATION
     Route: 048
  10. ESCITALOPRAM OXALATE [Concomitant]
     Indication: DEPRESSION
     Route: 048
  11. METFORMIN HCL [Concomitant]
     Indication: DIABETES MELLITUS
     Route: 048
  12. METHOTREXATE [Concomitant]
     Indication: RHEUMATOID ARTHRITIS
     Dosage: 2 2.5 TABS, ONE DAY PER WEEK
     Route: 048
  13. ESOMEPRAZOLE MAGNESIUM [Concomitant]
     Indication: GASTRIC DISORDER
     Route: 048
  14. FISH OIL [Concomitant]
     Indication: SUPPLEMENTATION THERAPY
     Route: 048
  15. OXYCODONE HCL [Concomitant]
     Indication: PAIN
     Route: 048
  16. OXYCODONE HCL [Concomitant]
     Indication: PAIN
     Route: 048
  17. PREDNISONE [Concomitant]
     Indication: INFLAMMATION
     Route: 048
  18. CONJUGATED ESTROGENS [Concomitant]
     Indication: HORMONE REPLACEMENT THERAPY
     Route: 048
  19. MIRTAZAPINE [Concomitant]
     Indication: DEPRESSION
     Route: 048
  20. QUETIAPINE FUMARATE [Concomitant]
     Indication: MENTAL DISORDER
     Dosage: 150 MG QAM, 300 MG QPM
     Route: 048
  21. TYLOX [Concomitant]
     Indication: PAIN
     Route: 048
  22. CARISOPRODOL [Concomitant]
     Indication: MUSCLE RELAXANT THERAPY
     Route: 048
  23. ALPRAZOLAM [Concomitant]
     Indication: ANXIETY
     Route: 048
  24. MORPHINE SULFATE INJ [Concomitant]
     Indication: PAIN
     Route: 048
  25. CHLORZOXAZONE [Concomitant]
     Indication: PAIN
     Route: 048

REACTIONS (14)
  - BREAST INDURATION [None]
  - BREAST MASS [None]
  - BREAST SWELLING [None]
  - ERYTHEMA [None]
  - FALL [None]
  - FOOT FRACTURE [None]
  - HAND FRACTURE [None]
  - NIPPLE DISORDER [None]
  - NIPPLE SWELLING [None]
  - PAIN [None]
  - PYREXIA [None]
  - RHEUMATOID ARTHRITIS [None]
  - SCRATCH [None]
  - STAPHYLOCOCCAL INFECTION [None]
